FAERS Safety Report 6871244-4 (Version None)
Quarter: 2010Q3

REPORT INFORMATION
  Report Type: 
  Country: None (occurrence: None)
  Receive Date: 20100723
  Receipt Date: 20100714
  Transmission Date: 20110219
  Serious: Yes (Other)
  Sender: FDA-Public Use
  Company Number: GB-PFIZER INC-2010061485

PATIENT
  Age: 70 Year
  Sex: Female

DRUGS (4)
  1. DEPO-MEDROL [Suspect]
     Dosage: 40 MG, AT 5 WEEK INTERVALS
  2. DEPO-MEDROL [Suspect]
     Dosage: 80 MG, AT 6 WEEK INTERVALS
  3. DEPO-MEDROL [Suspect]
     Dosage: 80 MG, ONE INJECTION
     Dates: start: 20100201, end: 20100201
  4. DEPO-MEDROL [Suspect]
     Dosage: 80 MG, ONE INJECTION
     Dates: start: 20100501, end: 20100501

REACTIONS (9)
  - ABDOMINAL DISTENSION [None]
  - CATARACT [None]
  - DRUG INEFFECTIVE [None]
  - JOINT SWELLING [None]
  - MACULAR DEGENERATION [None]
  - MUSCULAR WEAKNESS [None]
  - VAGINAL INFECTION [None]
  - VULVOVAGINAL DISCOMFORT [None]
  - VULVOVAGINAL PAIN [None]
